FAERS Safety Report 23349972 (Version 1)
Quarter: 2023Q4

REPORT INFORMATION
  Report Type: Spontaneous
  Country: US (occurrence: US)
  Receive Date: 20231229
  Receipt Date: 20231229
  Transmission Date: 20240110
  Serious: No
  Sender: FDA-Public Use
  Company Number: US-ASTELLAS-2023US018617

PATIENT
  Age: 64 Year
  Sex: Male

DRUGS (2)
  1. PADCEV [Suspect]
     Active Substance: ENFORTUMAB VEDOTIN-EJFV
     Indication: Bladder cancer
     Dosage: 1.25 MG/KG, CYCLIC (ON D1, 8, 15 EVERY 28 DAYS) (C1D1)
     Route: 042
     Dates: start: 20230614
  2. PADCEV [Suspect]
     Active Substance: ENFORTUMAB VEDOTIN-EJFV
     Indication: Transitional cell carcinoma

REACTIONS (1)
  - Product temperature excursion issue [Unknown]

NARRATIVE: CASE EVENT DATE: 20230617
